FAERS Safety Report 6985847-X (Version None)
Quarter: 2010Q3

REPORT INFORMATION
  Report Type: 
  Country: None (occurrence: None)
  Receive Date: 20100827
  Receipt Date: 20100708
  Transmission Date: 20110219
  Serious: No
  Sender: FDA-Public Use
  Company Number: 015278

PATIENT
  Sex: Male
  Weight: 113.4 kg

DRUGS (7)
  1. LACOSAMIDE [Suspect]
     Indication: EPILEPSY
     Dosage: 100 MG BID ORAL (150 MG BID ORAL)
     Route: 048
     Dates: start: 20100314, end: 20100625
  2. LACOSAMIDE [Suspect]
     Indication: EPILEPSY
     Dosage: 100 MG BID ORAL (150 MG BID ORAL)
     Route: 048
     Dates: start: 20100625
  3. DILANTIN [Concomitant]
  4. TEGRETOL [Concomitant]
  5. DEPAKOTE [Concomitant]
  6. ATIVAN [Concomitant]
  7. AMBIEN [Concomitant]

REACTIONS (4)
  - CONVULSION [None]
  - COORDINATION ABNORMAL [None]
  - LETHARGY [None]
  - TREMOR [None]
